FAERS Safety Report 8311810-2 (Version None)
Quarter: 2012Q2

REPORT INFORMATION
  Report Type: 
  Country: None (occurrence: None)
  Receive Date: 20120425
  Receipt Date: 20120418
  Transmission Date: 20120825
  Serious: Yes (Hospitalization, Other)
  Sender: FDA-Public Use
  Company Number: CA-ABBOTT-12P-028-0927394-00

PATIENT
  Sex: Male
  Weight: 77.18 kg

DRUGS (3)
  1. BICALUTIMIDE [Suspect]
     Indication: PROSTATE CANCER
  2. CHEMOTHERAPY [Suspect]
     Indication: PROSTATE CANCER
  3. LUPRON DEPOT [Suspect]
     Indication: PROSTATE CANCER
     Route: 030
     Dates: start: 20110401

REACTIONS (2)
  - THROMBOSIS [None]
  - PULMONARY EMBOLISM [None]
